FAERS Safety Report 5517882-2 (Version None)
Quarter: 2007Q4

REPORT INFORMATION
  Report Type: 
  Country: None (occurrence: None)
  Receive Date: 20071113
  Receipt Date: 20071026
  Transmission Date: 20080405
  Serious: Yes (Hospitalization)
  Sender: FDA-Public Use
  Company Number: 2006US001975

PATIENT
  Age: 52 Year
  Sex: Male

DRUGS (12)
  1. PROGRAF [Suspect]
     Indication: LIVER TRANSPLANT
     Dosage: 3 MG, BID, ORAL
     Route: 048
     Dates: start: 20060518
  2. MYCOPHENOLATE MOFETIL [Suspect]
     Indication: PROPHYLAXIS AGAINST TRANSPLANT REJECTION
     Dosage: 1000 MG, BID, ORAL
     Route: 048
     Dates: start: 20060518
  3. PREDNISOLONE ACETATE [Suspect]
     Indication: PROPHYLAXIS AGAINST TRANSPLANT REJECTION
     Dosage: 10 MG, UID/QD, ORAL
     Route: 048
     Dates: start: 20060518
  4. NYSTATIN [Concomitant]
  5. PROTONIX [Concomitant]
  6. ACTIGALL [Concomitant]
  7. BACTRIM DS [Concomitant]
  8. MAG-OX (MAGNESIUM OXIDE) [Concomitant]
  9. NOVOLIN (INSULIN HUMAN INJECTION, ISOPHANE, INSULIN HUMAN) [Concomitant]
  10. MULTIVITAMIN [Concomitant]
  11. ACTONEL [Concomitant]
  12. CALCIUM W/VITAMIN D NOS (CALCIUM, VITAMIN D NOS) [Concomitant]

REACTIONS (2)
  - MIGRAINE [None]
  - PYREXIA [None]
